FAERS Safety Report 7516535-9 (Version None)
Quarter: 2011Q2

REPORT INFORMATION
  Report Type: 
  Country: None (occurrence: None)
  Receive Date: 20110601
  Receipt Date: 20110524
  Transmission Date: 20111010
  Serious: Yes (Hospitalization, Other)
  Sender: FDA-Public Use
  Company Number: B0715059A

PATIENT
  Sex: Male

DRUGS (2)
  1. URIEF [Concomitant]
     Dosage: 16MG PER DAY
     Route: 048
     Dates: start: 20080620, end: 20100722
  2. DUTASTERIDE [Suspect]
     Indication: BENIGN PROSTATIC HYPERPLASIA
     Dosage: .5MG PER DAY
     Route: 048
     Dates: start: 20100507

REACTIONS (1)
  - ACUTE MYOCARDIAL INFARCTION [None]
